FAERS Safety Report 23037358 (Version 2)
Quarter: 2024Q1

REPORT INFORMATION
  Report Type: Spontaneous
  Country: US (occurrence: US)
  Receive Date: 20231006
  Receipt Date: 20240103
  Transmission Date: 20240410
  Serious: No
  Sender: FDA-Public Use
  Company Number: US-AUROBINDO-AUR-APL-2023-059933

PATIENT
  Age: 73 Year
  Sex: Male

DRUGS (1)
  1. BROMFENAC SODIUM [Suspect]
     Active Substance: BROMFENAC SODIUM
     Indication: Eye inflammation
     Dosage: UNK, TWO TIMES A DAY (FOR 02 MONTHS)
     Route: 065

REACTIONS (3)
  - Product dose omission issue [Unknown]
  - Product container seal issue [Unknown]
  - Product packaging quantity issue [Unknown]
